FAERS Safety Report 9976336 (Version 1)
Quarter: 2014Q1

REPORT INFORMATION
  Report Type: Report from Study
  Country: US (occurrence: US)
  Receive Date: 20140306
  Receipt Date: 20140306
  Transmission Date: 20141002
  Serious: No
  Sender: FDA-Public Use
  Company Number: US-ABBVIE-13P-163-1164076-00

PATIENT
  Sex: Female
  Weight: 63.56 kg

DRUGS (9)
  1. HUMIRA [Suspect]
     Indication: RHEUMATOID ARTHRITIS
     Dates: start: 2002, end: 2006
  2. HUMIRA [Suspect]
     Dates: start: 201304
  3. PLAQUENIL [Concomitant]
     Indication: RHEUMATOID ARTHRITIS
  4. FOLIC ACID [Concomitant]
     Indication: FOLATE DEFICIENCY
  5. TRAMADOL [Concomitant]
     Indication: PAIN
  6. SULFASALZINE [Concomitant]
     Indication: RHEUMATOID ARTHRITIS
  7. XANAX [Concomitant]
     Indication: PAIN
  8. METHOTREXATE [Concomitant]
     Indication: RHEUMATOID ARTHRITIS
  9. MULTIVITAMIN [Concomitant]
     Indication: VITAMIN SUPPLEMENTATION

REACTIONS (1)
  - Drug effect decreased [Unknown]
